FAERS Safety Report 5389043-1 (Version None)
Quarter: 2007Q3

REPORT INFORMATION
  Report Type: 
  Country: None (occurrence: None)
  Receive Date: 20070717
  Receipt Date: 20070514
  Transmission Date: 20080115
  Serious: Yes (Death)
  Sender: FDA-Public Use
  Company Number: FR-NOVOPROD-263672

PATIENT
  Age: 83 Year
  Sex: Female

DRUGS (2)
  1. NOVOSEVEN [Suspect]
     Indication: ACQUIRED HAEMOPHILIA WITH ANTI FVIII, XI, OR XIII
  2. CORTICOSTEROIDS [Concomitant]
     Dosage: 1 MG/KG PER DAY
     Route: 048

REACTIONS (3)
  - CONDITION AGGRAVATED [None]
  - MUSCLE HAEMORRHAGE [None]
  - SHOCK HAEMORRHAGIC [None]
